FAERS Safety Report 5613719-1 (Version None)
Quarter: 2008Q1

REPORT INFORMATION
  Report Type: 
  Country: None (occurrence: None)
  Receive Date: 20080205
  Receipt Date: 20080128
  Transmission Date: 20080703
  Serious: Yes (Death)
  Sender: FDA-Public Use
  Company Number: RU-NOVOPROD-271672

PATIENT
  Age: 68 Year
  Sex: Female
  Weight: 69.7 kg

DRUGS (4)
  1. NOVOLOG MIX 70/30 [Suspect]
     Indication: TYPE 2 DIABETES MELLITUS
     Dosage: 40 IU, QD
     Route: 058
     Dates: start: 20071207, end: 20080124
  2. SIMVASTATIN [Concomitant]
     Route: 048
  3. BISOPROLOL [Concomitant]
     Dosage: 10 MG, UNK
     Route: 048
  4. AMLODIPINE [Concomitant]
     Dosage: UNK, UNK
     Route: 066

REACTIONS (1)
  - LOSS OF CONSCIOUSNESS [None]
